FAERS Safety Report 10208924 (Version 1)
Quarter: 2014Q2

REPORT INFORMATION
  Report Type: Spontaneous
  Country: GB (occurrence: GB)
  Receive Date: 20140530
  Receipt Date: 20140530
  Transmission Date: 20141212
  Serious: Yes (Other)
  Sender: FDA-Public Use
  Company Number: PHHY2014GB065058

PATIENT
  Age: 40 Year
  Sex: Female
  Weight: 52 kg

DRUGS (9)
  1. CO-AMOXICLAV [Suspect]
     Indication: POUCHITIS
     Dosage: 1 DF, TID
     Route: 048
     Dates: start: 20140501, end: 20140504
  2. AMITRIPTYLINE [Concomitant]
  3. CYCLIZINE [Concomitant]
  4. ESOMEPRAZOLE [Concomitant]
  5. GABAPENTIN [Concomitant]
  6. HYOSCINE BUTYLBROMIDE [Concomitant]
  7. METOCLOPRAMIDE [Concomitant]
  8. NEFOPAM [Concomitant]
  9. ONDANSETRON [Concomitant]

REACTIONS (5)
  - Tongue blistering [Recovering/Resolving]
  - Oral mucosal blistering [Recovering/Resolving]
  - Oropharyngeal blistering [Recovering/Resolving]
  - Blister [Recovering/Resolving]
  - Nausea [Unknown]
